FAERS Safety Report 5114196-X (Version None)
Quarter: 2006Q3

REPORT INFORMATION
  Report Type: 
  Country: None (occurrence: None)
  Receive Date: 20060925
  Receipt Date: 20060914
  Transmission Date: 20061208
  Serious: Yes (Other)
  Sender: FDA-Public Use
  Company Number: JP-SANOFI-SYNTHELABO-A01200607739

PATIENT
  Age: 9 Month

DRUGS (1)
  1. ZOLPIDEM TARTRATE [Suspect]
     Indication: AFFECT LABILITY
     Route: 063

REACTIONS (3)
  - COMA [None]
  - DRUG EXPOSURE VIA BREAST MILK [None]
  - HYPERKINESIA [None]
